FAERS Safety Report 4436931-6 (Version None)
Quarter: 2004Q3

REPORT INFORMATION
  Report Type: 
  Country: None (occurrence: None)
  Receive Date: 20040726
  Receipt Date: 20040323
  Transmission Date: 20050211
  Serious: No
  Sender: FDA-Public Use
  Company Number: USA040362709

PATIENT
  Age: 88 Year
  Sex: Female

DRUGS (12)
  1. FORTEO [Suspect]
     Dosage: 5 UG/1 DAY
     Dates: start: 20040303
  2. PRILOSEC [Concomitant]
  3. XANAX [Concomitant]
  4. SYNTHROID [Concomitant]
  5. APO-METOPROLOL (METOPROLOL TARTRATE) [Concomitant]
  6. NORVASC [Concomitant]
  7. VALIUM [Concomitant]
  8. VIOXX [Concomitant]
  9. DEXAMETHASONE [Concomitant]
  10. DARVOCET-N 100 [Concomitant]
  11. DONNATAL [Concomitant]
  12. ELIXOPHYLLIN (THEOPHYLLINE) [Concomitant]

REACTIONS (2)
  - FALL [None]
  - PAIN [None]
